FAERS Safety Report 9309953 (Version 1)
Quarter: 2013Q2

REPORT INFORMATION
  Report Type: Spontaneous
  Country: BE (occurrence: BE)
  Receive Date: 20130527
  Receipt Date: 20130527
  Transmission Date: 20140414
  Serious: Yes (Life-Threatening, Hospitalization)
  Sender: FDA-Public Use
  Company Number: 2013SP004274

PATIENT
  Age: 52 Year
  Sex: Male

DRUGS (13)
  1. VANCOMYCIN [Suspect]
     Indication: PYREXIA
     Dates: start: 20121231, end: 20130105
  2. VANCOMYCIN [Suspect]
     Indication: TOOTH EXTRACTION
     Dates: start: 20121231, end: 20130105
  3. MEROPENEM [Suspect]
     Indication: PYREXIA
     Dates: start: 20121231, end: 20130105
  4. MEROPENEM [Suspect]
     Indication: TOOTH EXTRACTION
     Dates: start: 20121231, end: 20130105
  5. AUGMENTINE /00852501/ [Suspect]
     Indication: PYREXIA
     Dates: start: 20121231, end: 201301
  6. AUGMENTINE /00852501/ [Suspect]
     Indication: TOOTH EXTRACTION
     Dates: start: 20121231, end: 201301
  7. AMUKIN [Suspect]
     Indication: PYREXIA
     Dates: start: 20121231, end: 20130105
  8. AMUKIN [Suspect]
     Indication: TOOTH EXTRACTION
     Dates: start: 20121231, end: 20130105
  9. EMCONCOR [Concomitant]
  10. ZANTAC [Concomitant]
  11. ZOCOR [Concomitant]
  12. NOVORAPID [Concomitant]
  13. LANTUS [Concomitant]

REACTIONS (2)
  - Thrombocytopenia [Recovered/Resolved]
  - Viral infection [Recovered/Resolved]
